FAERS Safety Report 9207854 (Version 1)
Quarter: 2013Q2

REPORT INFORMATION
  Report Type: Spontaneous
  Country: SI (occurrence: SI)
  Receive Date: 20130403
  Receipt Date: 20130403
  Transmission Date: 20140414
  Serious: Yes (Other)
  Sender: FDA-Public Use
  Company Number: SI-JNJFOC-20130318586

PATIENT
  Age: 81 Year
  Sex: Male

DRUGS (1)
  1. PALEXIA [Suspect]
     Indication: CANCER PAIN
     Route: 048

REACTIONS (2)
  - Delusion [Recovered/Resolved]
  - Hallucination [Recovered/Resolved]
